FAERS Safety Report 5375128-2 (Version None)
Quarter: 2007Q2

REPORT INFORMATION
  Report Type: 
  Country: None (occurrence: None)
  Receive Date: 20070629
  Receipt Date: 20070626
  Transmission Date: 20071010
  Serious: Yes (Other)
  Sender: FDA-Public Use
  Company Number: PHEH2007US07529

PATIENT
  Age: 59 Year
  Sex: Female

DRUGS (3)
  1. ELIDEL [Suspect]
     Indication: DRY SKIN
     Dosage: UNK, UNK
     Route: 061
     Dates: start: 20070221
  2. CELEBREX [Concomitant]
     Dosage: 200 MG, UNK
     Route: 048
  3. KLONOPIN [Concomitant]
     Indication: RESTLESS LEGS SYNDROME
     Dosage: 0.5 MG, UNK
     Route: 048

REACTIONS (6)
  - BIOPSY BREAST [None]
  - BREAST CANCER [None]
  - BREAST NECROSIS [None]
  - MAMMOGRAM ABNORMAL [None]
  - MASTECTOMY [None]
  - PRECANCEROUS CELLS PRESENT [None]
